FAERS Safety Report 25588540 (Version 3)
Quarter: 2025Q3

REPORT INFORMATION
  Report Type: Spontaneous
  Country: EU (occurrence: EU)
  Receive Date: 20250722
  Receipt Date: 20250808
  Transmission Date: 20251021
  Serious: Yes (Hospitalization)
  Sender: NOVARTIS
  Company Number: EU-002147023-NVSC2025BE113494

PATIENT
  Age: 70 Year
  Sex: Male

DRUGS (1)
  1. PLUVICTO [Suspect]
     Active Substance: LUTETIUM LU-177 VIPIVOTIDE TETRAXETAN
     Indication: Prostate cancer metastatic
     Route: 042
     Dates: start: 20250603

REACTIONS (6)
  - Eye haemorrhage [Unknown]
  - Visual impairment [Not Recovered/Not Resolved]
  - Ocular hyperaemia [Not Recovered/Not Resolved]
  - Blindness [Not Recovered/Not Resolved]
  - Glaucoma [Not Recovered/Not Resolved]
  - Hyphaema [Not Recovered/Not Resolved]

NARRATIVE: CASE EVENT DATE: 20250714
